FAERS Safety Report 8567243-7 (Version None)
Quarter: 2012Q3

REPORT INFORMATION
  Report Type: 
  Country: None (occurrence: None)
  Receive Date: 20120803
  Receipt Date: 20110829
  Transmission Date: 20120928
  Serious: No
  Sender: FDA-Public Use
  Company Number: US-ABBOTT-11P-163-0849816-00

PATIENT
  Sex: Female
  Weight: 71.732 kg

DRUGS (4)
  1. TIMOLOL MALEATE [Concomitant]
     Indication: PRODUCT USED FOR UNKNOWN INDICATION
     Dosage: EYE DROP
  2. NIASPAN [Suspect]
     Dosage: AT BEDTIME
     Route: 048
  3. ASPIRIN [Concomitant]
     Indication: PROPHYLAXIS
     Route: 048
  4. NIASPAN [Suspect]
     Indication: BLOOD CHOLESTEROL ABNORMAL
     Dosage: AT BEDTIME
     Route: 048
     Dates: start: 20100801

REACTIONS (2)
  - HOT FLUSH [None]
  - FLUSHING [None]
